FAERS Safety Report 22294853 (Version 5)
Quarter: 2024Q1

REPORT INFORMATION
  Report Type: Spontaneous
  Country: US (occurrence: US)
  Receive Date: 20230508
  Receipt Date: 20240105
  Transmission Date: 20240409
  Serious: No
  Sender: FDA-Public Use
  Company Number: US-PFIZER INC-PV202300081965

PATIENT
  Age: 47 Year
  Sex: Female

DRUGS (2)
  1. BRAFTOVI [Suspect]
     Active Substance: ENCORAFENIB
     Indication: Metastatic malignant melanoma
     Dosage: 225 MG, 1X/DAY (TAKE 3 CAPSULES. MAY TAKE WITH OR WITHOUT FOOD)
     Route: 048
  2. MEKTOVI [Suspect]
     Active Substance: BINIMETINIB
     Indication: Metastatic malignant melanoma
     Dosage: 15 MG, 2X/DAY (TAKE 1 TABLET. MAY TAKE WITH OR WITHOUT FOOD)
     Route: 048

REACTIONS (4)
  - Tooth fracture [Unknown]
  - Impaired healing [Unknown]
  - Influenza [Unknown]
  - Illness [Unknown]
